FAERS Safety Report 10924973 (Version 1)
Quarter: 2015Q1

REPORT INFORMATION
  Report Type: Spontaneous
  Country: US (occurrence: None)
  Receive Date: 20150316
  Receipt Date: 20150316
  Transmission Date: 20150721
  Serious: Yes (Other)
  Sender: FDA-Public Use
  Company Number: None

PATIENT
  Age: 46 Year
  Sex: Female
  Weight: 55.79 kg

DRUGS (1)
  1. EMEND [Suspect]
     Active Substance: APREPITANT
     Route: 042

REACTIONS (4)
  - Infusion related reaction [None]
  - Hypersensitivity [None]
  - Ear discomfort [None]
  - Nausea [None]

NARRATIVE: CASE EVENT DATE: 20150311
